FAERS Safety Report 23561918 (Version 1)
Quarter: 2024Q1

REPORT INFORMATION
  Report Type: Report from Study
  Country: US (occurrence: US)
  Receive Date: 20240225
  Receipt Date: 20240225
  Transmission Date: 20240410
  Serious: Yes (Other)
  Sender: FDA-Public Use
  Company Number: US-ABBVIE-5290394

PATIENT
  Sex: Male

DRUGS (1)
  1. HUMIRA [Suspect]
     Active Substance: ADALIMUMAB
     Indication: Colitis ulcerative
     Dosage: CITRATE FREE FORM STRENGTH: 40 MILLIGRAM
     Route: 058
     Dates: start: 201911, end: 20230719

REACTIONS (7)
  - Prostate cancer stage I [Not Recovered/Not Resolved]
  - Skin cancer [Unknown]
  - Post procedural complication [Unknown]
  - Urinoma [Unknown]
  - Impaired healing [Unknown]
  - Spondylitis [Unknown]
  - Scar [Unknown]

NARRATIVE: CASE EVENT DATE: 20230101
